FAERS Safety Report 7052443-8 (Version None)
Quarter: 2010Q4

REPORT INFORMATION
  Report Type: 
  Country: None (occurrence: None)
  Receive Date: 20101019
  Receipt Date: 20100921
  Transmission Date: 20110411
  Serious: Yes (Other)
  Sender: FDA-Public Use
  Company Number: US-PURDUE-USA-2010-0049273

PATIENT
  Sex: Female

DRUGS (2)
  1. OXYCONTIN [Suspect]
     Indication: BACK PAIN
     Dosage: 80 MG, SEE TEXT
     Route: 048
     Dates: start: 19960101
  2. OXYCONTIN [Suspect]
     Indication: SCOLIOSIS

REACTIONS (2)
  - CLAVICLE FRACTURE [None]
  - FEMUR FRACTURE [None]
